FAERS Safety Report 24360769 (Version 2)
Quarter: 2024Q4

REPORT INFORMATION
  Report Type: Spontaneous
  Country: US (occurrence: US)
  Receive Date: 20240925
  Receipt Date: 20241004
  Transmission Date: 20250115
  Serious: No
  Sender: BAXTER
  Company Number: US-BAXTER-2024BAX024548

PATIENT
  Sex: Male

DRUGS (6)
  1. NOREPINEPHRINE BITARTRATE [Suspect]
     Active Substance: NOREPINEPHRINE BITARTRATE
     Indication: Hypotension
     Dosage: 4MG IN 250ML NORMAL SALINE
     Route: 042
     Dates: start: 20240812
  2. NOREPINEPHRINE BITARTRATE [Suspect]
     Active Substance: NOREPINEPHRINE BITARTRATE
     Dosage: INFUSION WAS STARTED AGAIN AT A HIGHER RATE
     Route: 041
     Dates: start: 20240822
  3. VASOPRESSIN [Suspect]
     Active Substance: VASOPRESSIN
     Indication: Hypotension
     Dosage: D5W, 40 UNITS/100ML (UNKNOWN RATE OF ADMINISTRATION)
     Route: 042
     Dates: start: 20240812
  4. VASOPRESSIN [Suspect]
     Active Substance: VASOPRESSIN
     Dosage: INFUSION WAS STARTED AGAIN AT A HIGHER RATE
     Route: 041
     Dates: start: 20240822
  5. SODIUM CHLORIDE [Suspect]
     Active Substance: SODIUM CHLORIDE
     Dosage: 250ML (NS)
     Route: 042
     Dates: start: 20240812
  6. DEXTROSE [Suspect]
     Active Substance: DEXTROSE MONOHYDRATE
     Dosage: DEXTROSE 5%
     Route: 042
     Dates: start: 20240812

REACTIONS (3)
  - Blood antidiuretic hormone decreased [Unknown]
  - Device issue [Unknown]
  - Hypotension [Recovered/Resolved]

NARRATIVE: CASE EVENT DATE: 20240812
